APPROVED DRUG PRODUCT: PRAZOSIN HYDROCHLORIDE
Active Ingredient: PRAZOSIN HYDROCHLORIDE
Strength: EQ 5MG BASE
Dosage Form/Route: CAPSULE;ORAL
Application: A071745 | Product #001 | TE Code: AB
Applicant: TEVA PHARMACEUTICALS USA
Approved: Sep 12, 1988 | RLD: No | RS: No | Type: RX